FAERS Safety Report 10486166 (Version 1)
Quarter: 2014Q4

REPORT INFORMATION
  Report Type: Spontaneous
  Country: US (occurrence: US)
  Receive Date: 20141001
  Receipt Date: 20141001
  Transmission Date: 20150528
  Serious: Yes (Other)
  Sender: FDA-Public Use
  Company Number: US-JNJFOC-20140925586

PATIENT
  Age: 66 Year
  Sex: Male
  Weight: 113.4 kg

DRUGS (4)
  1. COUMADIN [Concomitant]
     Active Substance: WARFARIN SODIUM
     Dosage: STARTED 8 YEARS AGO
     Dates: end: 20140803
  2. INVOKANA [Suspect]
     Active Substance: CANAGLIFLOZIN
     Indication: DIABETES MELLITUS
     Route: 048
     Dates: start: 20140718, end: 20140730
  3. GLIMEPIRIDE. [Concomitant]
     Active Substance: GLIMEPIRIDE
     Indication: DIABETES MELLITUS
     Route: 048
     Dates: start: 2013
  4. ALLOPURINOL. [Concomitant]
     Active Substance: ALLOPURINOL
     Indication: GOUT
     Route: 048
     Dates: start: 2008

REACTIONS (5)
  - Dyspnoea [Recovering/Resolving]
  - Respiratory tract congestion [Unknown]
  - Fatigue [Not Recovered/Not Resolved]
  - Bronchitis [Unknown]
  - Rash macular [Unknown]

NARRATIVE: CASE EVENT DATE: 201407
